FAERS Safety Report 15613370 (Version 1)
Quarter: 2018Q4

REPORT INFORMATION
  Report Type: Spontaneous
  Country: IT (occurrence: IT)
  Receive Date: 20181113
  Receipt Date: 20181113
  Transmission Date: 20190205
  Serious: Yes (Other)
  Sender: FDA-Public Use
  Company Number: IT-PFIZER INC-2018462065

PATIENT
  Age: 59 Year
  Sex: Female

DRUGS (8)
  1. TACHIDOL [Concomitant]
     Active Substance: ACETAMINOPHEN\CODEINE PHOSPHATE
  2. CALCIUM SANDOZ [CALCIUM CARBONATE] [Concomitant]
  3. IBRANCE [Suspect]
     Active Substance: PALBOCICLIB
     Indication: BREAST CANCER
     Dosage: 125 MG, 1X/DAY
     Route: 048
     Dates: start: 20170721, end: 20171010
  4. FASLODEX [Concomitant]
     Active Substance: FULVESTRANT
     Dates: start: 20170718, end: 20170912
  5. DIBASE [Concomitant]
     Active Substance: CHOLECALCIFEROL
  6. PLASIL [METOCLOPRAMIDE] [Concomitant]
  7. DEXAMETHASONE. [Concomitant]
     Active Substance: DEXAMETHASONE
  8. XGEVA [Concomitant]
     Active Substance: DENOSUMAB
     Dates: start: 20161227, end: 20171205

REACTIONS (5)
  - Neutropenia [Unknown]
  - Thrombocytopenia [Unknown]
  - Asthenia [Unknown]
  - Hypertransaminasaemia [Unknown]
  - Nausea [Unknown]

NARRATIVE: CASE EVENT DATE: 20170801
